FAERS Safety Report 24133854 (Version 1)
Quarter: 2024Q3

REPORT INFORMATION
  Report Type: Spontaneous
  Country: GB (occurrence: GB)
  Receive Date: 20240724
  Receipt Date: 20240724
  Transmission Date: 20241017
  Serious: Yes (Other)
  Sender: TEVA
  Company Number: GB-TAKEDA-2023TUS121549

PATIENT
  Age: 55 Year
  Sex: Male

DRUGS (4)
  1. DOXORUBICIN [Suspect]
     Active Substance: DOXORUBICIN
     Indication: Anaplastic large cell lymphoma T- and null-cell types
     Dosage: UNKNOWN
     Route: 065
     Dates: start: 202205
  2. PREDNISONE [Suspect]
     Active Substance: PREDNISONE
     Indication: Anaplastic large cell lymphoma T- and null-cell types
     Dosage: UNKNOWN
     Route: 065
     Dates: start: 202205
  3. CYCLOPHOSPHAMIDE [Suspect]
     Active Substance: CYCLOPHOSPHAMIDE
     Indication: Anaplastic large cell lymphoma T- and null-cell types
     Dosage: UNKNOWN
     Route: 065
     Dates: start: 202205
  4. BRENTUXIMAB VEDOTIN [Suspect]
     Active Substance: BRENTUXIMAB VEDOTIN
     Indication: Anaplastic large cell lymphoma T- and null-cell types
     Dosage: UNKNOWN
     Route: 065
     Dates: start: 202205

REACTIONS (5)
  - Febrile neutropenia [Unknown]
  - Rash [Recovered/Resolved]
  - Pruritus [Recovered/Resolved]
  - Pyrexia [Recovered/Resolved]
  - Tooth infection [Recovered/Resolved]
